FAERS Safety Report 25122275 (Version 1)
Quarter: 2025Q1

REPORT INFORMATION
  Report Type: Other
  Country: FR (occurrence: FR)
  Receive Date: 20250326
  Receipt Date: 20250326
  Transmission Date: 20250408
  Serious: Yes (Hospitalization)
  Sender: Atnahs Healthcare
  Company Number: None

PATIENT
  Age: 23 Year
  Sex: Male
  Weight: 74.5 kg

DRUGS (2)
  1. DIAZEPAM [Suspect]
     Active Substance: DIAZEPAM
     Indication: Intentional overdose
     Route: 048
     Dates: start: 20250125, end: 20250125
  2. BACLOFEN [Suspect]
     Active Substance: BACLOFEN
     Indication: Intentional overdose
     Route: 048
     Dates: start: 20250125, end: 20250125

REACTIONS (2)
  - Coma [Recovered/Resolved]
  - Poisoning deliberate [Recovered/Resolved]

NARRATIVE: CASE EVENT DATE: 20250125
